FAERS Safety Report 7652156-5 (Version None)
Quarter: 2011Q3

REPORT INFORMATION
  Report Type: 
  Country: None (occurrence: None)
  Receive Date: 20110803
  Receipt Date: 20110722
  Transmission Date: 20111222
  Serious: Yes (Hospitalization, Other)
  Sender: FDA-Public Use
  Company Number: US-BAYER-200939231NA

PATIENT
  Age: 35 Year
  Sex: Male
  Weight: 150 kg

DRUGS (11)
  1. TRASYLOL [Suspect]
     Indication: AORTIC VALVE REPLACEMENT
     Dosage: 1 ML, INITIAL TEST DOSE
     Route: 042
     Dates: start: 20050104, end: 20050104
  2. TRASYLOL [Suspect]
     Dosage: 200 CC LOADING DOSE
     Route: 042
     Dates: start: 20050104, end: 20050104
  3. LEVOPHED [Concomitant]
     Dosage: UNK
     Route: 042
     Dates: start: 20050104, end: 20050104
  4. NITROGLYCERIN [Concomitant]
     Dosage: UNK
     Route: 042
     Dates: start: 20050104, end: 20050104
  5. ALBUMIN (HUMAN) [Concomitant]
     Dosage: 500 ML, UNK
     Route: 042
     Dates: start: 20050104, end: 20050104
  6. TOBRAMYCIN [Concomitant]
     Dosage: 80 MG, UNK
     Route: 042
     Dates: start: 20050104, end: 20050104
  7. BEXTRA [Concomitant]
     Dosage: 20 MG, QD
     Route: 048
  8. ACETYLSALICYLIC ACID SRT [Concomitant]
     Dosage: 325 MG, QD
     Route: 048
  9. VANCOMYCIN [Concomitant]
     Dosage: 500 MG, UNK
     Route: 042
     Dates: start: 20050104, end: 20050104
  10. TRASYLOL [Suspect]
     Dosage: INFUSION OF 50 CC AND HOUR
     Route: 042
     Dates: start: 20050104, end: 20050104
  11. HEPARIN [Concomitant]
     Dosage: UNK
     Route: 042
     Dates: start: 20050104, end: 20050104

REACTIONS (13)
  - INJURY [None]
  - ANXIETY [None]
  - FEAR [None]
  - RENAL IMPAIRMENT [None]
  - RENAL INJURY [None]
  - STRESS [None]
  - EMOTIONAL DISTRESS [None]
  - PAIN [None]
  - MEMORY IMPAIRMENT [None]
  - RENAL FAILURE [None]
  - DEPRESSION [None]
  - COMA [None]
  - UNEVALUABLE EVENT [None]
